FAERS Safety Report 21486717 (Version 1)
Quarter: 2022Q4

REPORT INFORMATION
  Report Type: Report from Study
  Country: US (occurrence: US)
  Receive Date: 20221020
  Receipt Date: 20221020
  Transmission Date: 20230113
  Serious: Yes (Hospitalization)
  Sender: FDA-Public Use
  Company Number: US-ABBVIE-4168311

PATIENT
  Sex: Female

DRUGS (1)
  1. IMBRUVICA [Suspect]
     Active Substance: IBRUTINIB
     Indication: Chronic lymphocytic leukaemia
     Dosage: TIME INTERVAL: 0.33333333 DAYS: 420MG DAILY
     Route: 048
     Dates: start: 20200504

REACTIONS (4)
  - Hypotension [Unknown]
  - Dehydration [Unknown]
  - Urinary tract infection [Unknown]
  - Dizziness [Unknown]
